FAERS Safety Report 15226750 (Version 2)
Quarter: 2018Q3

REPORT INFORMATION
  Report Type: Spontaneous
  Country: IR (occurrence: IR)
  Receive Date: 20180801
  Receipt Date: 20180817
  Transmission Date: 20181010
  Serious: Yes (Other)
  Sender: FDA-Public Use
  Company Number: PHHY2018IR057804

PATIENT
  Sex: Female

DRUGS (1)
  1. ACLASTA [Suspect]
     Active Substance: ZOLEDRONIC ACID
     Indication: OSTEOPOROSIS
     Dosage: 5 MG, UNK (ONCE YEARLY)
     Route: 042

REACTIONS (4)
  - Swelling [Unknown]
  - Erythema [Unknown]
  - Prescription drug used without a prescription [Unknown]
  - Osteonecrosis of jaw [Recovered/Resolved with Sequelae]
